FAERS Safety Report 8615674-9 (Version None)
Quarter: 2012Q3

REPORT INFORMATION
  Report Type: 
  Country: None (occurrence: None)
  Receive Date: 20120823
  Receipt Date: 20120813
  Transmission Date: 20120928
  Serious: Yes (Other)
  Sender: FDA-Public Use
  Company Number: US-WATSON-2012-14576

PATIENT
  Sex: Male
  Weight: 66 kg

DRUGS (1)
  1. BUPROPION HCL [Suspect]
     Indication: ANXIETY
     Dosage: QD
     Route: 048
     Dates: start: 20110901, end: 20111001

REACTIONS (3)
  - PRIAPISM [None]
  - ERECTILE DYSFUNCTION [None]
  - GENITAL PAIN [None]
